FAERS Safety Report 7710575-2 (Version None)
Quarter: 2011Q3

REPORT INFORMATION
  Report Type: 
  Country: None (occurrence: None)
  Receive Date: 20110825
  Receipt Date: 20110817
  Transmission Date: 20111222
  Serious: No
  Sender: FDA-Public Use
  Company Number: US-BAYER-2011-060494

PATIENT
  Sex: Female

DRUGS (1)
  1. MIRENA [Suspect]
     Indication: CONTRACEPTION
     Dosage: 20 ?G/D, UNK
     Route: 015
     Dates: start: 20110101, end: 20110101

REACTIONS (4)
  - NAUSEA [None]
  - DIZZINESS [None]
  - UTERINE SPASM [None]
  - PALLOR [None]
